FAERS Safety Report 12401271 (Version 2)
Quarter: 2016Q2

REPORT INFORMATION
  Report Type: Spontaneous
  Country: US (occurrence: US)
  Receive Date: 20160525
  Receipt Date: 20160627
  Transmission Date: 20160815
  Serious: Yes (Other)
  Sender: FDA-Public Use
  Company Number: US-AUROBINDO-AUR-APL-2016-06483

PATIENT
  Age: 81 Year
  Sex: Female

DRUGS (4)
  1. KETOROLAC [Suspect]
     Active Substance: KETOROLAC\KETOROLAC TROMETHAMINE
     Indication: PAIN
     Dosage: 30 MG, UNK
     Route: 030
  2. LIDOCAINE. [Concomitant]
     Active Substance: LIDOCAINE
     Indication: ANAESTHESIA
     Dosage: 2 ML, UNK
     Route: 065
  3. CLOPIDOGREL [Suspect]
     Active Substance: CLOPIDOGREL BISULFATE
     Indication: TRANSIENT ISCHAEMIC ATTACK
     Dosage: 75 MG, DAILY
     Route: 065
  4. BETAMETHASONE. [Suspect]
     Active Substance: BETAMETHASONE
     Indication: ANAESTHESIA
     Dosage: 6 MG/ML SUSPENSION MIXED IN WITH 1ML OF PRESERVATIVE FREE NORMAL SALINE
     Route: 008

REACTIONS (5)
  - Injection site pain [Recovered/Resolved]
  - Paraesthesia [Recovered/Resolved]
  - Sensory loss [Recovered/Resolved]
  - Motor dysfunction [Recovered/Resolved]
  - Extradural haematoma [Recovered/Resolved]
